FAERS Safety Report 5093362-6 (Version None)
Quarter: 2006Q3

REPORT INFORMATION
  Report Type: 
  Country: None (occurrence: None)
  Receive Date: 20060828
  Receipt Date: 20060816
  Transmission Date: 20061208
  Serious: Yes (Hospitalization)
  Sender: FDA-Public Use
  Company Number: GXKR2006GB04849

PATIENT
  Age: 85 Year
  Sex: Female

DRUGS (18)
  1. ASPIRIN [Suspect]
     Dosage: 75 MG, QD, ORAL
     Route: 048
     Dates: start: 20010101, end: 20050110
  2. CITALOPAM (NGX) (CITALOPRAM) [Suspect]
     Indication: DEPRESSION
     Dosage: 10 MG, QD, ORAL
     Route: 048
     Dates: start: 20041223
  3. TINZAPARIN(TINZAPARIN) [Suspect]
     Indication: THROMBOSIS PROPHYLAXIS
     Dosage: 4500 DF, SUBCUTANEOUS
     Route: 058
     Dates: start: 20041214, end: 20050110
  4. ADCAL-D3(CALCIUM CARBONATE, COLECALCIFEROL) [Concomitant]
  5. ALENDRONATE SODIUM [Concomitant]
  6. BENDROFLUAZIDE (BENDROFLUMETHIAZIDE) [Concomitant]
  7. BETAXOLOL [Concomitant]
  8. BRIMONIDINE (BRIMONIDINE) [Concomitant]
  9. BRIMONIDINE TARTRATE [Concomitant]
  10. FERROUS SULFATE TAB [Concomitant]
  11. LATANOPROST [Concomitant]
  12. ACETAMINOPHEN [Concomitant]
  13. PERINDOPRIL ERBUMINE [Concomitant]
  14. QUININE SULFATE [Concomitant]
  15. SENNA (SENNA, SENNA ALEXANDRINA) [Concomitant]
  16. SIMVASTATIN [Concomitant]
  17. DOCUSATE SODIUM (DOCUSATE SODIUM) [Concomitant]
  18. TRAMADOL HCL [Concomitant]

REACTIONS (2)
  - DUODENAL ULCER [None]
  - GASTROINTESTINAL HAEMORRHAGE [None]
